FAERS Safety Report 8951590 (Version 1)
Quarter: 2012Q4

REPORT INFORMATION
  Report Type: Report from Study
  Country: FR (occurrence: FR)
  Receive Date: 20121204
  Receipt Date: 20121204
  Transmission Date: 20130627
  Serious: Yes (Other)
  Sender: FDA-Public Use
  Company Number: FR-PFIZER INC-2012299817

PATIENT
  Age: 65 Year
  Sex: Female
  Weight: 70 kg

DRUGS (18)
  1. ARACYTINE [Suspect]
     Indication: ACUTE MYELOID LEUKEMIA
     Dosage: 350 mg a day
     Route: 042
     Dates: start: 20100514, end: 20100521
  2. ARACYTINE [Suspect]
     Dosage: 3500 mg a day
     Route: 042
     Dates: start: 20100529, end: 20100531
  3. ARACYTINE [Suspect]
     Dosage: 1725 mg a day (day 1 to Day 4)
     Route: 042
     Dates: start: 20100730
  4. ARACYTINE [Suspect]
     Dosage: 1700  mg, 2x/day (day1 to Day4)
     Route: 042
     Dates: start: 20100913, end: 20100916
  5. DAUNORUBICIN [Suspect]
     Indication: ACUTE MYELOID LEUKEMIA
     Dosage: 105 mg a day
     Route: 042
     Dates: start: 20100514, end: 20100516
  6. DAUNORUBICIN [Suspect]
     Dosage: 62 mg a day
     Dates: start: 20100529, end: 20100530
  7. DAUNORUBICIN [Suspect]
     Dosage: 32  mg a day
     Route: 042
     Dates: start: 20100730
  8. DAUNORUBICIN [Suspect]
     Dosage: 102.5 mlg a day
     Route: 042
     Dates: start: 20100913, end: 20100914
  9. ZELITREX [Concomitant]
     Indication: ANTIVIRAL PROPHYLAXIS
     Dosage: 500 mg a day
     Route: 048
     Dates: start: 20100728, end: 20100823
  10. NOXAFIL [Concomitant]
     Indication: SYSTEMIC ANTIFUNGAL TREATMENT
     Dosage: 600 mg a day
     Route: 048
     Dates: start: 20100728, end: 20100813
  11. LOVENOX [Concomitant]
     Indication: ANTICOAGULANT THERAPY
     Dosage: 0.4 ml a day
     Route: 058
     Dates: start: 20100705, end: 20100805
  12. HALDOL [Concomitant]
     Indication: ANXIODEPRESSIVE SYNDROME
     Dosage: 1 mg a day
     Route: 048
     Dates: start: 20100706, end: 20100823
  13. LOXEN [Concomitant]
     Indication: HYPERTENSION
     Dosage: 100 mg a day
     Route: 048
     Dates: start: 20100707, end: 20100823
  14. PLITICAN [Concomitant]
     Indication: CHEMOTHERAPY ANTIEMETIC PROPHYLAXIS
     Dosage: 30 mg a day
     Route: 048
     Dates: start: 20100729, end: 20100819
  15. ZOPHREN [Concomitant]
     Indication: CHEMOTHERAPY ANTIEMETIC PROPHYLAXIS
     Dosage: 16 mg a day
     Route: 048
     Dates: start: 20100730, end: 20100803
  16. EMEND [Concomitant]
     Indication: CHEMOTHERAPY ANTIEMETIC PROPHYLAXIS
     Dosage: 125 mg a day
     Route: 048
     Dates: start: 20100730, end: 20100803
  17. CHIBRO-CADRON [Concomitant]
     Indication: CHEMOPROPHYLAXIS NOS
     Dosage: 4 drops/each eye/ day
     Route: 047
     Dates: start: 20100730, end: 20100803
  18. SEROPLEX [Concomitant]
     Indication: ANXIODEPRESSIVE SYNDROME
     Dosage: 20 mg/day
     Route: 048
     Dates: start: 20100706, end: 20100823

REACTIONS (1)
  - Mixed liver injury [Recovered/Resolved]
